FAERS Safety Report 13371404 (Version 5)
Quarter: 2017Q2

REPORT INFORMATION
  Report Type: Report from Study
  Country: SE (occurrence: SE)
  Receive Date: 20170324
  Receipt Date: 20170502
  Transmission Date: 20170830
  Serious: Yes (Death, Life-Threatening, Hospitalization, Disabling, Other)
  Sender: FDA-Public Use
  Company Number: SE-EXELIXIS-XL18417008561

PATIENT
  Age: 48 Year
  Sex: Male
  Weight: 70.4 kg

DRUGS (4)
  1. BLINDED XL184 [Suspect]
     Active Substance: CABOZANTINIB
     Indication: MEDULLARY THYROID CANCER
     Dosage: 100 MG OR 40 MG
     Dates: start: 20161205, end: 20170228
  2. OXYCODONE [Concomitant]
     Active Substance: OXYCODONE
  3. BLINDED XL184 [Suspect]
     Active Substance: CABOZANTINIB
     Indication: MEDULLARY THYROID CANCER
     Dosage: 100 MG OR 40 MG
     Dates: start: 20161205, end: 20170228
  4. OXYNORM [Concomitant]
     Active Substance: OXYCODONE HYDROCHLORIDE

REACTIONS (5)
  - Extradural abscess [Fatal]
  - Tracheal fistula [Not Recovered/Not Resolved]
  - Sepsis [Recovering/Resolving]
  - Central nervous system lesion [Unknown]
  - Pneumonia [Recovering/Resolving]

NARRATIVE: CASE EVENT DATE: 20170228
